FAERS Safety Report 15705098 (Version 1)
Quarter: 2018Q4

REPORT INFORMATION
  Report Type: Spontaneous
  Country: US (occurrence: US)
  Receive Date: 20181210
  Receipt Date: 20181210
  Transmission Date: 20190205
  Serious: No
  Sender: FDA-Public Use
  Company Number: US-SA-2018SA335938

PATIENT

DRUGS (3)
  1. CLOPIDOGREL BISULFATE. [Suspect]
     Active Substance: CLOPIDOGREL BISULFATE
     Indication: MYOCARDIAL INFARCTION
  2. AFIBRON [Concomitant]
     Indication: MYOCARDIAL INFARCTION
     Dosage: 2.5 MG, BID
  3. ELIQUIS [Suspect]
     Active Substance: APIXABAN
     Indication: MYOCARDIAL INFARCTION

REACTIONS (9)
  - Hypotension [Unknown]
  - Confusional state [Unknown]
  - Arthralgia [Unknown]
  - Joint swelling [Unknown]
  - Speech disorder [Unknown]
  - Asthenia [Unknown]
  - Mental disorder [Unknown]
  - Renal disorder [Unknown]
  - Cognitive disorder [Unknown]
